FAERS Safety Report 4632331-4 (Version None)
Quarter: 2005Q2

REPORT INFORMATION
  Report Type: 
  Country: None (occurrence: None)
  Receive Date: 20050411
  Receipt Date: 20050401
  Transmission Date: 20051028
  Serious: Yes (Hospitalization)
  Sender: FDA-Public Use
  Company Number: CH-MERCK-0504CHE00002

PATIENT
  Age: 72 Year
  Sex: Male

DRUGS (10)
  1. HYZAAR [Suspect]
     Indication: HYPERTENSION
     Route: 048
     Dates: end: 20050310
  2. FUROSEMIDE SODIUM [Suspect]
     Indication: HYPERTENSION
     Route: 048
     Dates: end: 20050310
  3. GLIBORNURIDE [Suspect]
     Indication: DIABETES MELLITUS
     Route: 048
     Dates: end: 20050310
  4. BIPERIDEN HYDROCHLORIDE TAB [Suspect]
     Indication: EXTRAPYRAMIDAL DISORDER
     Route: 065
     Dates: end: 20050310
  5. BIPERIDEN HYDROCHLORIDE TAB [Suspect]
     Indication: MOVEMENT DISORDER
     Route: 065
     Dates: end: 20050310
  6. RISPERIDONE [Suspect]
     Indication: SCHIZOAFFECTIVE DISORDER
     Route: 048
     Dates: end: 20050310
  7. VALPROATE SODIUM [Concomitant]
     Indication: EPILEPSY
     Route: 048
  8. LORAZEPAM [Concomitant]
     Route: 048
  9. ASPIRIN [Concomitant]
     Route: 048
  10. METFORMIN HYDROCHLORIDE [Concomitant]
     Indication: DIABETES MELLITUS
     Route: 048

REACTIONS (8)
  - EXTRAPYRAMIDAL DISORDER [None]
  - FATIGUE [None]
  - HYPOTENSION [None]
  - MUSCLE RIGIDITY [None]
  - NEUROLEPTIC MALIGNANT SYNDROME [None]
  - PYREXIA [None]
  - TACHYCARDIA [None]
  - URINARY INCONTINENCE [None]
